FAERS Safety Report 7471183-4 (Version None)
Quarter: 2011Q2

REPORT INFORMATION
  Report Type: 
  Country: None (occurrence: None)
  Receive Date: 20110510
  Receipt Date: 20110505
  Transmission Date: 20111010
  Serious: Yes (Other)
  Sender: FDA-Public Use
  Company Number: US-ABBOTT-11P-163-0723608-00

PATIENT
  Sex: Female

DRUGS (6)
  1. HUMIRA [Suspect]
     Indication: PSORIASIS
     Route: 058
  2. HUMIRA [Suspect]
     Route: 058
  3. DOVONEX [Concomitant]
     Indication: PSORIASIS
     Route: 061
  4. UNKNOWN OTHER MEDICATIONS [Concomitant]
     Indication: PRODUCT USED FOR UNKNOWN INDICATION
  5. HUMIRA [Suspect]
     Route: 058
  6. TACLONEX [Concomitant]
     Indication: PSORIASIS
     Route: 061

REACTIONS (4)
  - ARTHRALGIA [None]
  - COUGH [None]
  - EXOSTOSIS [None]
  - BACTERIAL INFECTION [None]
